FAERS Safety Report 11474401 (Version 1)
Quarter: 2015Q3

REPORT INFORMATION
  Report Type: Spontaneous
  Country: US (occurrence: None)
  Receive Date: 20150908
  Receipt Date: 20150908
  Transmission Date: 20151125
  Serious: Yes (Hospitalization, Disabling, Other)
  Sender: FDA-Public Use
  Company Number: None

PATIENT
  Age: 50 Year
  Sex: Female
  Weight: 81.65 kg

DRUGS (4)
  1. TOPROLOL [Concomitant]
  2. HYDROXYZINE [Suspect]
     Active Substance: HYDROXYZINE\HYDROXYZINE HYDROCHLORIDE
     Indication: RASH PRURITIC
     Dosage: 1 TO 2 TABLETS AT NIGHT
     Route: 048
     Dates: start: 20150220, end: 20150309
  3. SYNTHROID [Concomitant]
     Active Substance: LEVOTHYROXINE SODIUM
  4. ZYRTEC [Concomitant]
     Active Substance: CETIRIZINE HYDROCHLORIDE

REACTIONS (6)
  - Paranoia [None]
  - Delirium [None]
  - Economic problem [None]
  - Hallucination [None]
  - Refusal of treatment by patient [None]
  - Loss of employment [None]

NARRATIVE: CASE EVENT DATE: 20150309
